FAERS Safety Report 11645115 (Version 2)
Quarter: 2015Q4

REPORT INFORMATION
  Report Type: Spontaneous
  Country: GB (occurrence: GB)
  Receive Date: 20151020
  Receipt Date: 20151028
  Transmission Date: 20160304
  Serious: Yes (Hospitalization, Other)
  Sender: FDA-Public Use
  Company Number: GB-AMGEN-GBRSP2015108933

PATIENT
  Age: 87 Year
  Sex: Male

DRUGS (1)
  1. ARANESP [Suspect]
     Active Substance: DARBEPOETIN ALFA
     Indication: PRODUCT USED FOR UNKNOWN INDICATION
     Dosage: 40 MCG/0.4 ML, UNK
     Route: 065

REACTIONS (7)
  - Pain in extremity [Unknown]
  - Blood potassium increased [Recovered/Resolved]
  - Mass [Not Recovered/Not Resolved]
  - Peripheral swelling [Unknown]
  - Multi-organ disorder [Unknown]
  - Erythema [Not Recovered/Not Resolved]
  - Cardiac pacemaker insertion [Unknown]

NARRATIVE: CASE EVENT DATE: 201510
